FAERS Safety Report 7450617-5 (Version None)
Quarter: 2011Q2

REPORT INFORMATION
  Report Type: 
  Country: None (occurrence: None)
  Receive Date: 20110502
  Receipt Date: 20110419
  Transmission Date: 20111010
  Serious: Yes (Other)
  Sender: FDA-Public Use
  Company Number: US-ELI_LILLY_AND_COMPANY-US201007001701

PATIENT
  Sex: Male

DRUGS (16)
  1. VITAMIN C [Concomitant]
     Dosage: 500 MG, ONCE EVERY TWO DAYS
     Route: 065
  2. POTASSIUM [Concomitant]
     Dosage: 100 MG, QD (2 CAPSULES ONCE DAILY)
     Route: 065
  3. FORTEO [Suspect]
     Indication: OSTEOPOROSIS
     Dosage: 20 UG, DAILY (1/D)
     Route: 058
  4. VITAMIN D [Concomitant]
     Dosage: UNK, UNKNOWN
     Route: 065
  5. VITAMIN B COMPLEX CAP [Concomitant]
     Dosage: UNK, QD
     Route: 065
  6. TAMSULOSIN HCL [Concomitant]
     Indication: PROSTATE TENDERNESS
     Dosage: 0.4 MG, QD
  7. ASPIRIN [Concomitant]
     Indication: CARDIAC DISORDER
     Dosage: 81 MG, QD
     Route: 065
  8. STOOL SOFTENER [Concomitant]
     Indication: BOWEL MOVEMENT IRREGULARITY
     Dosage: 100 MG, QD
  9. FORTEO [Suspect]
     Dosage: 20 UG, DAILY (1/D)
     Route: 065
  10. CALCIUM [Concomitant]
     Indication: BONE DISORDER
     Dosage: UNK, UNKNOWN
     Route: 065
  11. PROSTAT [Concomitant]
     Dosage: 320 MG, QD
     Route: 065
  12. VITAMINS NOS [Concomitant]
  13. CARBIDOPA AND LEVODOPA [Concomitant]
  14. CLONAZEPAM [Concomitant]
     Indication: INSOMNIA
     Dosage: 1 MG, QD
     Route: 065
  15. FORTEO [Suspect]
     Dosage: 20 UG, DAILY (1/D)
     Route: 058
     Dates: start: 20100630
  16. FORTEO [Suspect]
     Dosage: 20 UG, DAILY (1/D)

REACTIONS (10)
  - MALAISE [None]
  - ASTHENIA [None]
  - BLADDER CANCER [None]
  - BOWEL MOVEMENT IRREGULARITY [None]
  - CONSTIPATION [None]
  - ILL-DEFINED DISORDER [None]
  - PARKINSON'S DISEASE [None]
  - WEIGHT DECREASED [None]
  - EATING DISORDER [None]
  - INTESTINAL FUNCTIONAL DISORDER [None]
